FAERS Safety Report 7949212-0 (Version None)
Quarter: 2011Q4

REPORT INFORMATION
  Report Type: 
  Country: None (occurrence: None)
  Receive Date: 20111129
  Receipt Date: 20111129
  Transmission Date: 20120403
  Serious: No
  Sender: FDA-Public Use
  Company Number: None

PATIENT
  Age: 60 Year
  Sex: Male

DRUGS (2)
  1. PENICILLIN [Suspect]
     Dates: start: 20090831, end: 20090915
  2. AMOXICILLIN AND CLAVULANATE POTASSIUM [Suspect]
     Dates: start: 20090914, end: 20090923

REACTIONS (8)
  - DIARRHOEA [None]
  - LIVER DISORDER [None]
  - HEPATITIS CHOLESTATIC [None]
  - CHOLESTASIS [None]
  - FISTULA [None]
  - HEPATIC HAEMATOMA [None]
  - POST PROCEDURAL COMPLICATION [None]
  - WEIGHT DECREASED [None]
